FAERS Safety Report 7398840-2 (Version None)
Quarter: 2011Q2

REPORT INFORMATION
  Report Type: 
  Country: None (occurrence: None)
  Receive Date: 20110404
  Receipt Date: 20110404
  Transmission Date: 20111010
  Serious: Yes (Death)
  Sender: FDA-Public Use
  Company Number: None

PATIENT
  Age: 70 Year
  Sex: Male

DRUGS (1)
  1. ABCIXIMAB UNKNOWN UNKNOWN [Suspect]
     Indication: CEREBROVASCULAR ACCIDENT
     Dosage: 10MG IV
     Route: 042
     Dates: start: 20101214, end: 20101214

REACTIONS (1)
  - HAEMORRHAGIC TRANSFORMATION STROKE [None]
